FAERS Safety Report 9839303 (Version 3)
Quarter: 2014Q2

REPORT INFORMATION
  Report Type: Report from Study
  Country: CA (occurrence: CA)
  Receive Date: 20140123
  Receipt Date: 20140620
  Transmission Date: 20141212
  Serious: Yes (Hospitalization)
  Sender: FDA-Public Use
  Company Number: PHHY2012CA066254

PATIENT
  Age: 85 Year
  Sex: Female

DRUGS (3)
  1. SANDOSTATIN LAR [Suspect]
     Indication: GASTROINTESTINAL DISORDER
     Dosage: 20 MG, ONCE A MONTH
     Route: 030
     Dates: start: 20051021
  2. SANDOSTATIN LAR [Suspect]
     Dosage: 30 MG, QMO
     Route: 030
  3. SANDOSTATIN LAR [Suspect]
     Dosage: 30 MG, QMO
     Route: 030
     Dates: start: 20130521

REACTIONS (8)
  - Gastroenteritis [Recovered/Resolved]
  - Gastrointestinal disorder [Recovered/Resolved]
  - Injection site reaction [Unknown]
  - Weight decreased [Unknown]
  - Injection site haemorrhage [Recovered/Resolved]
  - Gastrointestinal stoma complication [Unknown]
  - Diarrhoea [Unknown]
  - Fatigue [Unknown]
